FAERS Safety Report 16982686 (Version 1)
Quarter: 2019Q4

REPORT INFORMATION
  Report Type: Report from Study
  Country: ZA (occurrence: ZA)
  Receive Date: 20191101
  Receipt Date: 20191101
  Transmission Date: 20200122
  Serious: Yes (Life-Threatening, Other)
  Sender: FDA-Public Use
  Company Number: ZA-MYLANLABS-2019M1104030

PATIENT
  Age: 39 Year
  Sex: Male

DRUGS (46)
  1. ISONIAZID. [Suspect]
     Active Substance: ISONIAZID
     Indication: TUBERCULOSIS
     Dosage: 600 MILLIGRAM, QD
     Route: 048
     Dates: start: 20181215, end: 20190221
  2. PAS [Suspect]
     Active Substance: AMINOSALICYLIC ACID
     Dosage: 8 UNK
     Route: 048
     Dates: start: 20190701
  3. PYRAZINAMIDE. [Suspect]
     Active Substance: PYRAZINAMIDE
     Dosage: 1.5 GRAM, QD
     Route: 048
     Dates: start: 20190701
  4. BEDAQUILINE [Suspect]
     Active Substance: BEDAQUILINE
     Dosage: 200 MILLIGRAM, 3XW, M,W,F
     Route: 048
     Dates: start: 20181018, end: 20190221
  5. LEVOFLOXACIN. [Suspect]
     Active Substance: LEVOFLOXACIN
     Indication: TUBERCULOSIS
     Dosage: 1 UNK
     Route: 048
     Dates: start: 20190306, end: 20190519
  6. ISONIAZID. [Suspect]
     Active Substance: ISONIAZID
     Dosage: 600 MILLIGRAM, QD
     Route: 048
     Dates: start: 20190306
  7. AMITRIPTYLINE [Concomitant]
     Active Substance: AMITRIPTYLINE
  8. TERIZIDONE [Suspect]
     Active Substance: TERIZIDONE
     Dosage: 250/500 MG,
     Route: 048
     Dates: start: 20181215, end: 20190221
  9. TERIZIDONE [Suspect]
     Active Substance: TERIZIDONE
     Dosage: 250/500 MG,
     Route: 048
     Dates: start: 20190701
  10. AUGMENTIN [Suspect]
     Active Substance: AMOXICILLIN\CLAVULANATE POTASSIUM
     Dosage: 1 GRAM, BID
     Route: 048
     Dates: start: 20190701
  11. BEDAQUILINE [Suspect]
     Active Substance: BEDAQUILINE
     Dosage: 200 MILLIGRAM, 3XW, M,W,F
     Route: 048
     Dates: start: 20190701
  12. TEGRETOL [Concomitant]
     Active Substance: CARBAMAZEPINE
  13. NEVIRAPINE. [Concomitant]
     Active Substance: NEVIRAPINE
  14. CALCIUM GLUCONATE. [Concomitant]
     Active Substance: CALCIUM GLUCONATE
  15. LEVOFLOXACIN. [Suspect]
     Active Substance: LEVOFLOXACIN
     Dosage: 1 GRAM, QD
     Route: 048
     Dates: start: 20190701
  16. LINEZOLID. [Suspect]
     Active Substance: LINEZOLID
     Dosage: 600 MILLIGRAM, QD
     Route: 048
     Dates: start: 20190306, end: 2019
  17. PAS [Suspect]
     Active Substance: AMINOSALICYLIC ACID
     Dosage: 8 GRAM, QD
     Route: 048
     Dates: start: 20181215, end: 20190221
  18. CLOFAZIMINE [Suspect]
     Active Substance: CLOFAZIMINE
     Indication: TUBERCULOSIS
     Dosage: 100 MILLIGRAM, QD
     Route: 048
     Dates: start: 20190306, end: 20190519
  19. PYRAZINAMIDE. [Suspect]
     Active Substance: PYRAZINAMIDE
     Dosage: 1.5 GRAM, QD
     Route: 048
     Dates: start: 20190306, end: 2019
  20. ERTAPENEM. [Suspect]
     Active Substance: ERTAPENEM SODIUM
     Indication: TUBERCULOSIS
     Dosage: 1 GRAM, QD
     Route: 048
     Dates: start: 20181221, end: 20190221
  21. AUGMENTIN [Suspect]
     Active Substance: AMOXICILLIN\CLAVULANATE POTASSIUM
     Dosage: 1 GRAM, BID
     Route: 048
     Dates: start: 20190306
  22. TRUVADA [Suspect]
     Active Substance: EMTRICITABINE\TENOFOVIR DISOPROXIL FUMARATE
     Indication: ANTIRETROVIRAL THERAPY
     Dosage: UNK
  23. BACTRIM [Concomitant]
     Active Substance: SULFAMETHOXAZOLE\TRIMETHOPRIM
  24. CLOFAZIMINE [Suspect]
     Active Substance: CLOFAZIMINE
     Dosage: 100 MILLIGRAM, QD
     Route: 048
     Dates: start: 20190701
  25. PYRAZINAMIDE. [Suspect]
     Active Substance: PYRAZINAMIDE
     Indication: TUBERCULOSIS
     Dosage: 1.5 GRAM, QD
     Route: 048
     Dates: start: 20181215, end: 20190221
  26. ERTAPENEM. [Suspect]
     Active Substance: ERTAPENEM SODIUM
     Dosage: 1 GRAM, QD
     Route: 048
     Dates: start: 20190306
  27. AUGMENTIN [Suspect]
     Active Substance: AMOXICILLIN\CLAVULANATE POTASSIUM
     Indication: TUBERCULOSIS
     Dosage: 1 GRAM, BID
     Route: 048
     Dates: start: 20181221, end: 20190221
  28. ELTROXIN [Concomitant]
     Active Substance: LEVOTHYROXINE
     Dosage: UNK
  29. DUMIVA [Concomitant]
     Active Substance: ABACAVIR SULFATE\LAMIVUDINE
  30. LASIX [Concomitant]
     Active Substance: FUROSEMIDE
  31. LEVOFLOXACIN. [Suspect]
     Active Substance: LEVOFLOXACIN
     Dosage: 1 GRAM, QD
     Route: 048
     Dates: start: 20181215, end: 20190221
  32. LINEZOLID. [Suspect]
     Active Substance: LINEZOLID
     Indication: TUBERCULOSIS
     Dosage: 600 MILLIGRAM, QD
     Route: 048
     Dates: start: 20181215, end: 20190221
  33. ALUVIA [Concomitant]
     Active Substance: LOPINAVIR\RITONAVIR
  34. FOLATE [Concomitant]
     Active Substance: FOLATE SODIUM
  35. DELAMANID [Suspect]
     Active Substance: DELAMANID
     Indication: TUBERCULOSIS
     Dosage: 100 MILLIGRAM, BID
     Route: 048
     Dates: start: 20190306, end: 20190519
  36. DELAMANID [Suspect]
     Active Substance: DELAMANID
     Dosage: 100 UNK
     Route: 048
     Dates: start: 20190107, end: 20190221
  37. ISONIAZID. [Suspect]
     Active Substance: ISONIAZID
     Dosage: 600 MILLIGRAM, QD
     Route: 048
     Dates: start: 20190701
  38. PAS [Suspect]
     Active Substance: AMINOSALICYLIC ACID
     Indication: TUBERCULOSIS
     Dosage: 8 GRAM, QD
     Route: 048
     Dates: start: 20190306, end: 20190519
  39. CLOFAZIMINE [Suspect]
     Active Substance: CLOFAZIMINE
     Dosage: 100 MILLIGRAM, QD
     Route: 048
     Dates: start: 20181215, end: 20190221
  40. ERTAPENEM. [Suspect]
     Active Substance: ERTAPENEM SODIUM
     Dosage: 1 GRAM, QD
     Route: 048
     Dates: start: 20190701
  41. LYRICA [Concomitant]
     Active Substance: PREGABALIN
  42. MAXOLON [Concomitant]
     Active Substance: METOCLOPRAMIDE HYDROCHLORIDE
  43. LINEZOLID. [Suspect]
     Active Substance: LINEZOLID
     Dosage: 600 MILLIGRAM, QD
     Route: 048
     Dates: start: 20190701
  44. TERIZIDONE [Suspect]
     Active Substance: TERIZIDONE
     Indication: TUBERCULOSIS
     Dosage: 250/500 MG,
     Route: 048
     Dates: start: 20190306, end: 20190519
  45. BEDAQUILINE [Suspect]
     Active Substance: BEDAQUILINE
     Indication: TUBERCULOSIS
     Dosage: 200 MILLIGRAM, 3XW, M,W,F
     Route: 048
     Dates: start: 20190306
  46. PYRIDOXINE [Concomitant]
     Active Substance: PYRIDOXINE

REACTIONS (2)
  - Renal impairment [Recovered/Resolved]
  - Meningitis [Unknown]

NARRATIVE: CASE EVENT DATE: 20190220
